FAERS Safety Report 10152735 (Version 1)
Quarter: 2014Q2

REPORT INFORMATION
  Report Type: Spontaneous
  Country: US (occurrence: None)
  Receive Date: 20140502
  Receipt Date: 20140502
  Transmission Date: 20141212
  Serious: Yes (Hospitalization)
  Sender: FDA-Public Use
  Company Number: None

PATIENT
  Age: 72 Year
  Sex: Female
  Weight: 92.73 kg

DRUGS (2)
  1. CISPLATIN [Suspect]
  2. GEMCITABINE HYDROCHLORIDE [Suspect]

REACTIONS (20)
  - Dizziness [None]
  - Asthenia [None]
  - Fall [None]
  - Head injury [None]
  - Hyponatraemia [None]
  - Hypokalaemia [None]
  - Hypocalcaemia [None]
  - Hypomagnesaemia [None]
  - Hypophosphataemia [None]
  - Hyperglycaemia [None]
  - Blood chloride abnormal [None]
  - Radiation skin injury [None]
  - Pain [None]
  - Dysuria [None]
  - Inappropriate antidiuretic hormone secretion [None]
  - Diarrhoea [None]
  - Pyrexia [None]
  - Cognitive disorder [None]
  - Disorientation [None]
  - Urine leukocyte esterase positive [None]
